FAERS Safety Report 17990946 (Version 11)
Quarter: 2021Q1

REPORT INFORMATION
  Report Type: Report from Study
  Country: None (occurrence: CH)
  Receive Date: 20200707
  Receipt Date: 20210127
  Transmission Date: 20210419
  Serious: Yes (Hospitalization)
  Sender: FDA-Public Use
  Company Number: CH-ABBVIE-20K-151-3472382-00

PATIENT
  Age: 72 Year
  Sex: Male
  Weight: 57 kg

DRUGS (10)
  1. DUODOPA [Suspect]
     Active Substance: CARBIDOPA\LEVODOPA
     Dosage: MORNING DOSE: 3ML, CONTINUOUS RATE DAY: 5.9ML/H, EXTRA DOSE: 1ML?16H THERAPY
     Route: 050
     Dates: start: 20200327, end: 20200415
  2. DUODOPA [Suspect]
     Active Substance: CARBIDOPA\LEVODOPA
     Dosage: MORNING DOSE: MISSED, CONTINUOUS RATE DAY: 6ML/H, EXTRA DOSE: 1ML
     Route: 050
     Dates: start: 20200729, end: 20200729
  3. DUODOPA [Suspect]
     Active Substance: CARBIDOPA\LEVODOPA
     Dosage: MD 4.0ML, CRD 5.5ML/H, CRN 2.7 ML/H, ED 1ML
     Route: 050
     Dates: start: 20210121
  4. DUODOPA [Suspect]
     Active Substance: CARBIDOPA\LEVODOPA
     Dosage: MD 4.0ML, CRD 5.5ML/H, ED 1ML?16 H THERAPY
     Route: 050
     Dates: start: 20201120, end: 20210121
  5. DUODOPA [Suspect]
     Active Substance: CARBIDOPA\LEVODOPA
     Indication: PARKINSON^S DISEASE
     Route: 050
     Dates: start: 20190722, end: 20200327
  6. DUODOPA [Suspect]
     Active Substance: CARBIDOPA\LEVODOPA
     Dosage: MD 4.5ML, CRD 5.7ML/H, ED 1ML 16TH THERAPY
     Route: 050
     Dates: start: 20201118, end: 202011
  7. DUODOPA [Suspect]
     Active Substance: CARBIDOPA\LEVODOPA
     Dosage: MORNING DOSE: 3ML, CONTINUOUS RATE DAY: 6ML/H, EXTRA DOSE: 1ML, 16HR THERAPY
     Route: 050
     Dates: start: 20200729, end: 202008
  8. DUODOPA [Suspect]
     Active Substance: CARBIDOPA\LEVODOPA
     Dosage: MD 3ML, CRD 6.1ML/H, ED 3ML 16H THERAPY
     Route: 050
     Dates: start: 20200814, end: 20201118
  9. DUODOPA [Suspect]
     Active Substance: CARBIDOPA\LEVODOPA
     Dosage: MORNING DOSE: 3ML, CONTINUOUS RATE DAY: 6ML/H, EXTRA DOSE: 1ML, 16 H THERAPY
     Route: 050
     Dates: start: 20200415, end: 20200728
  10. DUODOPA [Suspect]
     Active Substance: CARBIDOPA\LEVODOPA
     Dosage: MD 3ML, CRD 6.1ML/H, ED 3ML 16H THERAPY
     Route: 050
     Dates: start: 202008, end: 20200814

REACTIONS (20)
  - Fall [Recovered/Resolved]
  - Weight decreased [Not Recovered/Not Resolved]
  - Dystonia [Not Recovered/Not Resolved]
  - Head injury [Unknown]
  - Wheelchair user [Not Recovered/Not Resolved]
  - Infection [Unknown]
  - Hyporesponsive to stimuli [Not Recovered/Not Resolved]
  - Psychiatric symptom [Not Recovered/Not Resolved]
  - Speech disorder [Recovering/Resolving]
  - Freezing phenomenon [Unknown]
  - Subdural haematoma [Recovering/Resolving]
  - Fall [Unknown]
  - Dyskinesia [Not Recovered/Not Resolved]
  - Akinesia [Recovered/Resolved]
  - General physical health deterioration [Recovering/Resolving]
  - Fine motor skill dysfunction [Recovering/Resolving]
  - Device issue [Not Recovered/Not Resolved]
  - Mobility decreased [Recovering/Resolving]
  - Hyperkinesia [Not Recovered/Not Resolved]
  - Fatigue [Not Recovered/Not Resolved]

NARRATIVE: CASE EVENT DATE: 202007
